FAERS Safety Report 11851644 (Version 1)
Quarter: 2015Q4

REPORT INFORMATION
  Report Type: Spontaneous
  Country: US (occurrence: US)
  Receive Date: 20151218
  Receipt Date: 20151218
  Transmission Date: 20160305
  Serious: No
  Sender: FDA-Public Use
  Company Number: US-JNJFOC-20151200516

PATIENT
  Age: 43 Year
  Sex: Male
  Weight: 76.66 kg

DRUGS (2)
  1. MENS ROGAINE EXTRA STRENGTH [Suspect]
     Active Substance: MINOXIDIL
     Route: 061
  2. MENS ROGAINE EXTRA STRENGTH [Suspect]
     Active Substance: MINOXIDIL
     Indication: ALOPECIA
     Dosage: ABOUT HALF A CAPFUL
     Route: 061
     Dates: end: 20151121

REACTIONS (2)
  - Pruritus [Recovering/Resolving]
  - Pain of skin [Recovering/Resolving]
